FAERS Safety Report 9723421 (Version 2)
Quarter: 2014Q1

REPORT INFORMATION
  Report Type: Spontaneous
  Country: VE (occurrence: VE)
  Receive Date: 20131202
  Receipt Date: 20140117
  Transmission Date: 20141002
  Serious: Yes (Death, Hospitalization)
  Sender: FDA-Public Use
  Company Number: VE-PFIZER INC-2013341971

PATIENT
  Age: 79 Year
  Sex: Male

DRUGS (1)
  1. LIPITOR [Suspect]
     Dosage: 40 MG, TWICE DAILY
     Dates: end: 201303

REACTIONS (4)
  - Cerebrovascular accident [Fatal]
  - Inflammation [Unknown]
  - Abdominal pain upper [Unknown]
  - Gallbladder pain [Unknown]
